FAERS Safety Report 14970617 (Version 4)
Quarter: 2018Q3

REPORT INFORMATION
  Report Type: Report from Study
  Country: US (occurrence: US)
  Receive Date: 20180604
  Receipt Date: 20180904
  Transmission Date: 20181010
  Serious: Yes (Hospitalization, Other)
  Sender: FDA-Public Use
  Company Number: US-JNJFOC-20180516769

PATIENT
  Age: 60 Year
  Sex: Male

DRUGS (15)
  1. IMBRUVICA [Suspect]
     Active Substance: IBRUTINIB
     Indication: CHRONIC LYMPHOCYTIC LEUKAEMIA
     Route: 048
     Dates: start: 20180419, end: 20180515
  2. IMBRUVICA [Concomitant]
     Active Substance: IBRUTINIB
     Indication: CHRONIC LYMPHOCYTIC LEUKAEMIA
     Dosage: UNK.
     Route: 048
     Dates: start: 20180117, end: 20180411
  3. IMBRUVICA [Suspect]
     Active Substance: IBRUTINIB
     Indication: CHRONIC LYMPHOCYTIC LEUKAEMIA
     Route: 048
     Dates: start: 20180602
  4. PREDNISONE. [Concomitant]
     Active Substance: PREDNISONE
  5. INSULIN [Concomitant]
     Active Substance: INSULIN NOS
  6. ELIQUIS [Concomitant]
     Active Substance: APIXABAN
  7. ROSUVASTATIN. [Concomitant]
     Active Substance: ROSUVASTATIN
  8. FISH OIL [Concomitant]
     Active Substance: FISH OIL
  9. IMBRUVICA [Suspect]
     Active Substance: IBRUTINIB
     Indication: CHRONIC LYMPHOCYTIC LEUKAEMIA
     Dosage: 280 MG, QD
     Route: 048
     Dates: start: 20180401
  10. IMBRUVICA [Suspect]
     Active Substance: IBRUTINIB
     Indication: CHRONIC LYMPHOCYTIC LEUKAEMIA
     Route: 048
     Dates: start: 20180411, end: 201806
  11. IMBRUVICA [Concomitant]
     Active Substance: IBRUTINIB
     Indication: CHRONIC LYMPHOCYTIC LEUKAEMIA
     Route: 048
     Dates: start: 20180117, end: 20180410
  12. ASPIRIN. [Concomitant]
     Active Substance: ASPIRIN
  13. IMBRUVICA [Concomitant]
     Active Substance: IBRUTINIB
     Indication: CHRONIC LYMPHOCYTIC LEUKAEMIA
     Dosage: UNK
     Route: 048
     Dates: start: 20180103
  14. CALTRATE WITH VITAMIN D [Concomitant]
     Active Substance: CALCIUM CARBONATE\CHOLECALCIFEROL
  15. VITAMIN D3 [Concomitant]
     Active Substance: CHOLECALCIFEROL

REACTIONS (16)
  - Loss of consciousness [Unknown]
  - Orthostatic hypotension [Unknown]
  - Urinary tract infection [Unknown]
  - Visual impairment [Not Recovered/Not Resolved]
  - Bacterial sepsis [Unknown]
  - Anaemia [Not Recovered/Not Resolved]
  - Product physical issue [Unknown]
  - Diabetic neuropathy [Not Recovered/Not Resolved]
  - Pyrexia [Unknown]
  - Incorrect dose administered [Unknown]
  - Off label use [Unknown]
  - Pneumothorax [Unknown]
  - Fall [Unknown]
  - Organising pneumonia [Unknown]
  - Pulmonary thrombosis [Unknown]
  - Pulmonary necrosis [Unknown]

NARRATIVE: CASE EVENT DATE: 201804
